FAERS Safety Report 5147656-6 (Version None)
Quarter: 2006Q4

REPORT INFORMATION
  Report Type: 
  Country: None (occurrence: None)
  Receive Date: 20060915
  Receipt Date: 20050724
  Transmission Date: 20070319
  Serious: Yes (Hospitalization)
  Sender: FDA-Public Use
  Company Number: S05-USA-00939-01

PATIENT
  Age: 52 Year
  Sex: Female

DRUGS (8)
  1. CELEXA [Suspect]
     Dosage: 40 MG QD PO
     Route: 048
     Dates: end: 20050201
  2. CELEXA [Suspect]
     Dosage: 40 MG QD PO
     Route: 048
     Dates: start: 20050201, end: 20050222
  3. GEODON [Suspect]
     Dosage: 60 MG BID PO
     Route: 048
     Dates: start: 20050201, end: 20050201
  4. GEODON [Suspect]
     Dosage: 60 MG BID PO
     Route: 048
     Dates: end: 20050201
  5. ALPRAZOLAM [Concomitant]
  6. BUSPIRONE HCL [Concomitant]
  7. TOPIRAMATE [Concomitant]
  8. ZIPRASIDONE HCL [Concomitant]

REACTIONS (3)
  - ELECTROCARDIOGRAM QT PROLONGED [None]
  - HYPOKALAEMIA [None]
  - TORSADE DE POINTES [None]
